FAERS Safety Report 6460297-3 (Version None)
Quarter: 2009Q4

REPORT INFORMATION
  Report Type: 
  Country: None (occurrence: None)
  Receive Date: 20091130
  Receipt Date: 20091122
  Transmission Date: 20100525
  Serious: Yes (Hospitalization, Disabling)
  Sender: FDA-Public Use
  Company Number: PHHO2009IL12419

PATIENT
  Sex: Male
  Weight: 45 kg

DRUGS (2)
  1. AFINITOR [Suspect]
     Indication: METASTATIC RENAL CELL CARCINOMA
     Dosage: 10 MG/DAY
     Route: 048
     Dates: start: 20090615, end: 20090921
  2. AFINITOR [Suspect]
     Dosage: OPEN LABEL
     Route: 048
     Dates: start: 20091122

REACTIONS (3)
  - CONSTIPATION [None]
  - MUSCULOSKELETAL PAIN [None]
  - OEDEMA PERIPHERAL [None]
